FAERS Safety Report 23060902 (Version 1)
Quarter: 2023Q4

REPORT INFORMATION
  Report Type: Spontaneous
  Country: US (occurrence: US)
  Receive Date: 20231012
  Receipt Date: 20231012
  Transmission Date: 20240110
  Serious: Yes (Hospitalization)
  Sender: FDA-Public Use
  Company Number: US-JNJFOC-20231022501

PATIENT
  Age: 80 Year
  Sex: Male

DRUGS (29)
  1. XARELTO [Suspect]
     Active Substance: RIVAROXABAN
     Indication: Atrial fibrillation
     Route: 048
  2. JARDIANCE [Suspect]
     Active Substance: EMPAGLIFLOZIN
     Indication: Cardiac failure congestive
     Route: 030
  3. TAMSULOSIN [Concomitant]
     Active Substance: TAMSULOSIN
  4. TYLENOL [Concomitant]
     Active Substance: ACETAMINOPHEN
  5. ALBUTEROL [Concomitant]
     Active Substance: ALBUTEROL
  6. ALLOPURINOL [Concomitant]
     Active Substance: ALLOPURINOL
  7. ALPRAZOLAM [Concomitant]
     Active Substance: ALPRAZOLAM
  8. ASCORBIC ACID [Concomitant]
     Active Substance: ASCORBIC ACID
  9. ASPIRIN [Concomitant]
     Active Substance: ASPIRIN
  10. BUMETANIDE [Concomitant]
     Active Substance: BUMETANIDE
  11. VITAMIN B12 [Concomitant]
     Active Substance: CYANOCOBALAMIN
  12. CYCLOBENZAPRINE [Concomitant]
     Active Substance: CYCLOBENZAPRINE
  13. IRON [Concomitant]
     Active Substance: IRON
  14. FERROUS SULFATE [Concomitant]
     Active Substance: FERROUS SULFATE
  15. FINASTERIDE [Concomitant]
     Active Substance: FINASTERIDE
  16. NOVOLIN R [Concomitant]
     Active Substance: INSULIN HUMAN
  17. LOSARTAN [Concomitant]
     Active Substance: LOSARTAN
  18. MAGNESIUM [Concomitant]
     Active Substance: MAGNESIUM
  19. MELATONIN [Concomitant]
     Active Substance: MELATONIN
  20. METFORMIN [Concomitant]
     Active Substance: METFORMIN HYDROCHLORIDE
  21. FISH OIL [Concomitant]
     Active Substance: FISH OIL
  22. MINERALS\VITAMINS [Concomitant]
     Active Substance: MINERALS\VITAMINS
  23. PANTOPRAZOLE [Concomitant]
     Active Substance: PANTOPRAZOLE
  24. POTASSIUM CHLORIDE [Concomitant]
     Active Substance: POTASSIUM CHLORIDE
  25. PREGABALIN [Concomitant]
     Active Substance: PREGABALIN
  26. SILVER SULFATE [Concomitant]
     Active Substance: SILVER SULFATE
  27. MIRALAX [Concomitant]
     Active Substance: POLYETHYLENE GLYCOL 3350
  28. CARVEDILOL [Concomitant]
     Active Substance: CARVEDILOL
  29. EPLERENONE [Concomitant]
     Active Substance: EPLERENONE

REACTIONS (1)
  - Heart valve operation [Recovering/Resolving]

NARRATIVE: CASE EVENT DATE: 20230518
